FAERS Safety Report 13719455 (Version 2)
Quarter: 2017Q3

REPORT INFORMATION
  Report Type: Report from Study
  Country: AU (occurrence: AU)
  Receive Date: 20170705
  Receipt Date: 20170718
  Transmission Date: 20171127
  Serious: Yes (Hospitalization, Other)
  Sender: FDA-Public Use
  Company Number: AU-BRISTOL-MYERS SQUIBB COMPANY-BMS-2017-056448

PATIENT
  Age: 59 Year
  Sex: Female
  Weight: 83.4 kg

DRUGS (2)
  1. NIVOLUMAB [Suspect]
     Active Substance: NIVOLUMAB
     Indication: NON-SMALL CELL LUNG CANCER
     Dosage: 200 MG, Q2WK,RECENT DOSE: 08JUN17
     Route: 042
     Dates: start: 20170608
  2. INC280 [Suspect]
     Active Substance: INVESTIGATIONAL PRODUCT
     Indication: NON-SMALL CELL LUNG CANCER
     Dosage: 400 MG, QD, RECENT DOSE: 19JUN17
     Route: 048
     Dates: start: 20170608

REACTIONS (7)
  - Pyrexia [Not Recovered/Not Resolved]
  - Rash macular [Recovered/Resolved]
  - Rash [Not Recovered/Not Resolved]
  - Disseminated intravascular coagulation [Recovered/Resolved]
  - Thrombocytopenia [Recovering/Resolving]
  - Neutropenia [Recovered/Resolved]
  - Anaphylactic reaction [Not Recovered/Not Resolved]

NARRATIVE: CASE EVENT DATE: 20170619
